FAERS Safety Report 6820513-2 (Version None)
Quarter: 2010Q3

REPORT INFORMATION
  Report Type: 
  Country: None (occurrence: None)
  Receive Date: 20100707
  Receipt Date: 20100622
  Transmission Date: 20110219
  Serious: Yes (Other)
  Sender: FDA-Public Use
  Company Number: PHHY2010JP42113

PATIENT
  Age: 59 Year
  Sex: Male

DRUGS (1)
  1. NEORAL [Suspect]
     Indication: INTERSTITIAL LUNG DISEASE
     Route: 048

REACTIONS (2)
  - DERMATITIS EXFOLIATIVE [None]
  - PHOTOSENSITIVITY REACTION [None]
